FAERS Safety Report 4972907-8 (Version None)
Quarter: 2006Q2

REPORT INFORMATION
  Report Type: 
  Country: None (occurrence: None)
  Receive Date: 20060410
  Receipt Date: 20060331
  Transmission Date: 20061013
  Serious: Yes (Other)
  Sender: FDA-Public Use
  Company Number: 2006044882

PATIENT
  Age: 65 Year
  Sex: Female
  Weight: 68.0396 kg

DRUGS (6)
  1. LIPITOR [Suspect]
     Indication: BLOOD CHOLESTEROL INCREASED
     Dosage: 10 MG (10 MG, 1 IN 1 D), ORAL
     Route: 048
     Dates: end: 20060328
  2. LEVAQUIN [Suspect]
     Indication: SINUS HEADACHE
     Dates: start: 20060201, end: 20060101
  3. COZAAR [Concomitant]
  4. ATENOLOL [Concomitant]
  5. FIBERCON (POLYCARBOPHIL CALCIUM) [Concomitant]
  6. GLUCOSAMINE (GLUCOSAMINE) [Concomitant]

REACTIONS (7)
  - ACTIVITIES OF DAILY LIVING IMPAIRED [None]
  - ARTHRALGIA [None]
  - HYPOKINESIA [None]
  - INFLAMMATION [None]
  - MYALGIA [None]
  - ROTATOR CUFF REPAIR [None]
  - SINUS HEADACHE [None]
